FAERS Safety Report 5233772-7 (Version None)
Quarter: 2007Q1

REPORT INFORMATION
  Report Type: 
  Country: None (occurrence: None)
  Receive Date: 20070208
  Receipt Date: 20070125
  Transmission Date: 20070707
  Serious: Yes (Death, Hospitalization)
  Sender: FDA-Public Use
  Company Number: US-ROCHE-479884

PATIENT
  Age: 85 Year
  Sex: Male

DRUGS (1)
  1. BONIVA [Suspect]
     Indication: OSTEOPOROSIS
     Dosage: PATIENT TOOK 1 PILL ON 01 SEPTEMBER 2006 AND NO MORE AFTER THAT.
     Route: 065
     Dates: start: 20060901, end: 20060901

REACTIONS (2)
  - HYPERSENSITIVITY [None]
  - INCOHERENT [None]
